FAERS Safety Report 6402191-X (Version None)
Quarter: 2009Q4

REPORT INFORMATION
  Report Type: 
  Country: None (occurrence: None)
  Receive Date: 20091015
  Receipt Date: 20091001
  Transmission Date: 20100525
  Serious: Yes (Death, Other)
  Sender: FDA-Public Use
  Company Number: FR-PFIZER INC-2009209375

PATIENT
  Age: 50 Year

DRUGS (2)
  1. GENOTONORM [Suspect]
     Indication: GROWTH HORMONE DEFICIENCY
     Dosage: 0.5 MG, 1X/DAY
     Route: 058
     Dates: start: 20070701, end: 20090504
  2. GENOTONORM [Suspect]
     Indication: HYPOPITUITARISM

REACTIONS (3)
  - DERMOID CYST [None]
  - METASTATIC NEOPLASM [None]
  - NEUROENDOCRINE TUMOUR [None]
